FAERS Safety Report 5316273-7 (Version None)
Quarter: 2007Q2

REPORT INFORMATION
  Report Type: 
  Country: None (occurrence: None)
  Receive Date: 20070430
  Receipt Date: 20070419
  Transmission Date: 20071010
  Serious: Yes (Life-Threatening, Hospitalization)
  Sender: FDA-Public Use
  Company Number: 163-21880-06100533

PATIENT
  Age: 59 Year
  Sex: Female

DRUGS (14)
  1. REVLIMID [Suspect]
     Indication: MYELOPROLIFERATIVE DISORDER
     Dosage: 5 MG, 1 IN 1 D, ORAL
     Route: 048
     Dates: start: 20060816, end: 20060907
  2. PREDNISONE TAB [Suspect]
     Indication: MYELOPROLIFERATIVE DISORDER
     Dosage: 40 MG, QD, ORAL
     Route: 048
     Dates: start: 20060816, end: 20060816
  3. ASPIRIN [Concomitant]
  4. RED BLOOD CELL TRANSFUSION (BLOOD CELLS, PACKED HUMAN) [Concomitant]
  5. NEXIUM [Concomitant]
  6. ALLOPURINOL [Concomitant]
  7. DUONEB [Concomitant]
  8. ZOFRAN [Concomitant]
  9. TESSALON PERELES (BENZONATATE) [Concomitant]
  10. ADVAIR DISKUS (SERETIDE MITE) [Concomitant]
  11. MEGACE [Concomitant]
  12. NYSTATIN (NYSTATIN) (CREAM) [Concomitant]
  13. NICOTINE (NICOTINE) (POULTICE OR PATCH) [Concomitant]
  14. VOCODIN (VICODIN) [Concomitant]

REACTIONS (18)
  - ALANINE AMINOTRANSFERASE INCREASED [None]
  - ASPARTATE AMINOTRANSFERASE INCREASED [None]
  - ASTHENIA [None]
  - ATELECTASIS [None]
  - BLOOD POTASSIUM DECREASED [None]
  - BLOOD SODIUM DECREASED [None]
  - BONE MARROW TRANSPLANT [None]
  - CARDIOMEGALY [None]
  - DIALYSIS [None]
  - DISEASE PROGRESSION [None]
  - DYSPNOEA [None]
  - FALL [None]
  - FATIGUE [None]
  - FEELING ABNORMAL [None]
  - LUNG INFILTRATION [None]
  - MYELODYSPLASTIC SYNDROME [None]
  - PAIN [None]
  - PNEUMONIA [None]
